FAERS Safety Report 19388148 (Version 4)
Quarter: 2021Q3

REPORT INFORMATION
  Report Type: Spontaneous
  Country: GB (occurrence: GB)
  Receive Date: 20210608
  Receipt Date: 20210723
  Transmission Date: 20211014
  Serious: Yes (Death, Hospitalization, Other)
  Sender: FDA-Public Use
  Company Number: GB-VIIV HEALTHCARE LIMITED-GB2021EME117357

PATIENT
  Age: 65 Year
  Sex: Female
  Weight: 67.2 kg

DRUGS (2)
  1. TRIUMEQ [Concomitant]
     Active Substance: ABACAVIR SULFATE\DOLUTEGRAVIR SODIUM\LAMIVUDINE
     Indication: HIV INFECTION
     Dosage: UNK
     Dates: end: 2020
  2. DOVATO [Suspect]
     Active Substance: DOLUTEGRAVIR SODIUM\LAMIVUDINE
     Indication: HIV INFECTION
     Dosage: 50 MG, QD, TABLET
     Route: 048
     Dates: start: 20201031, end: 20210521

REACTIONS (14)
  - Liver disorder [Fatal]
  - Chronic obstructive pulmonary disease [Fatal]
  - Embolism venous [Fatal]
  - Alcoholism [Fatal]
  - Viraemia [Fatal]
  - Deep vein thrombosis [Fatal]
  - HIV infection [Fatal]
  - Treatment noncompliance [Unknown]
  - Pneumonia aspiration [Fatal]
  - Hepatitis C [Fatal]
  - Virologic failure [Unknown]
  - Alcoholic liver disease [Fatal]
  - Respiratory failure [Unknown]
  - Diarrhoea [Unknown]

NARRATIVE: CASE EVENT DATE: 20210505
